FAERS Safety Report 9746932 (Version 1)
Quarter: 2013Q4

REPORT INFORMATION
  Report Type: Spontaneous
  Country: US (occurrence: US)
  Receive Date: 20131211
  Receipt Date: 20131211
  Transmission Date: 20140711
  Serious: Yes (Other)
  Sender: FDA-Public Use
  Company Number: US-SA-2013SA127630

PATIENT
  Age: 56 Year
  Sex: Female
  Weight: 68.94 kg

DRUGS (16)
  1. ARAVA [Suspect]
     Indication: RHEUMATOID ARTHRITIS
     Route: 065
     Dates: start: 201205, end: 201302
  2. HUMIRA [Suspect]
     Indication: RHEUMATOID ARTHRITIS
     Route: 058
     Dates: start: 201112, end: 201203
  3. HUMIRA [Suspect]
     Indication: RHEUMATOID ARTHRITIS
     Route: 058
     Dates: start: 201210, end: 201302
  4. HUMIRA [Suspect]
     Indication: RHEUMATOID ARTHRITIS
     Route: 058
     Dates: start: 201304
  5. METHOTREXATE [Suspect]
     Route: 065
     Dates: start: 201001, end: 201205
  6. FLUOCINONIDE [Concomitant]
     Indication: NASAL DISORDER
  7. FLUOCINONIDE [Concomitant]
     Indication: MULTIPLE ALLERGIES
  8. VITAMINS NOS [Concomitant]
     Indication: VITAMIN SUPPLEMENTATION
  9. VITAMIN B COMPLEX [Concomitant]
  10. OMEGA-3 TRIGLYCERIDES [Concomitant]
     Indication: RHEUMATOID ARTHRITIS
  11. MAGNESIUM [Concomitant]
  12. CALCIUM CITRATE [Concomitant]
  13. PREDNISONE [Concomitant]
     Indication: RHEUMATOID ARTHRITIS
     Route: 065
  14. ZINC [Concomitant]
  15. VITAMIN D3 [Concomitant]
     Indication: RHEUMATOID ARTHRITIS
  16. ASPIRIN [Concomitant]

REACTIONS (7)
  - Herpes zoster [Recovered/Resolved]
  - Sinusitis [Recovered/Resolved]
  - Blood cholesterol increased [Recovered/Resolved]
  - Hepatic enzyme increased [Recovered/Resolved]
  - Injection site bruising [Unknown]
  - Drug effect decreased [Unknown]
  - Arthralgia [Unknown]
